FAERS Safety Report 23717311 (Version 2)
Quarter: 2024Q2

REPORT INFORMATION
  Report Type: Spontaneous
  Country: JP (occurrence: JP)
  Receive Date: 20240408
  Receipt Date: 20240429
  Transmission Date: 20240716
  Serious: Yes (Other)
  Sender: FDA-Public Use
  Company Number: JP-KYOWAKIRIN-2024KK006671

PATIENT
  Age: 43 Year
  Sex: Female

DRUGS (3)
  1. PEGFILGRASTIM [Suspect]
     Active Substance: PEGFILGRASTIM
     Indication: Product used for unknown indication
     Dosage: 3.6 MILLIGRAM
     Route: 058
     Dates: start: 20240229
  2. EPIRUBICIN HYDROCHLORIDE [Concomitant]
     Active Substance: EPIRUBICIN HYDROCHLORIDE
     Indication: Breast cancer
     Dosage: 90 MICROGRAM/SQ. METER
     Route: 065
     Dates: start: 20240227
  3. CYCLOPHOSPHAMIDE [Concomitant]
     Active Substance: CYCLOPHOSPHAMIDE
     Indication: Breast cancer
     Dosage: 600 MICROGRAM/SQ. METER
     Route: 065
     Dates: start: 20240227

REACTIONS (1)
  - Febrile neutropenia [Recovered/Resolved]

NARRATIVE: CASE EVENT DATE: 20240305
